FAERS Safety Report 23246698 (Version 2)
Quarter: 2024Q1

REPORT INFORMATION
  Report Type: Report from Study
  Country: US (occurrence: US)
  Receive Date: 20231130
  Receipt Date: 20240228
  Transmission Date: 20240410
  Serious: Yes (Hospitalization)
  Sender: FDA-Public Use
  Company Number: US-TAKEDA-2023TUS046294

PATIENT
  Age: 37 Year
  Sex: Male

DRUGS (3)
  1. BRIGATINIB [Suspect]
     Active Substance: BRIGATINIB
     Indication: Metastases to lung
     Dosage: 180 MILLIGRAM, QD
     Route: 048
     Dates: start: 20221123
  2. BRIGATINIB [Suspect]
     Active Substance: BRIGATINIB
     Dosage: 180 MILLIGRAM, QD
     Route: 048
  3. BRIGATINIB [Suspect]
     Active Substance: BRIGATINIB
     Dosage: 180 MILLIGRAM, QD
     Route: 048

REACTIONS (3)
  - Hospitalisation [Unknown]
  - Pain [Unknown]
  - Scan abnormal [Unknown]

NARRATIVE: CASE EVENT DATE: 20240201
